FAERS Safety Report 12463023 (Version 1)
Quarter: 2016Q2

REPORT INFORMATION
  Report Type: Spontaneous
  Country: US (occurrence: US)
  Receive Date: 20160614
  Receipt Date: 20160614
  Transmission Date: 20160815
  Serious: No
  Sender: FDA-Public Use
  Company Number: US-JNJFOC-20160509076

PATIENT
  Age: 17 Year
  Sex: Female

DRUGS (1)
  1. STELARA [Suspect]
     Active Substance: USTEKINUMAB
     Indication: PSORIASIS
     Dosage: (THE REP THINKS SHE^S RECEIVING 45MG. BUT IT WAS NOT MENTIONED TO HIM).
     Route: 058

REACTIONS (3)
  - Psoriasis [Unknown]
  - Product use issue [Unknown]
  - Off label use [Unknown]
